FAERS Safety Report 9542310 (Version 5)
Quarter: 2013Q4

REPORT INFORMATION
  Report Type: Spontaneous
  Country: NL (occurrence: NL)
  Receive Date: 20130923
  Receipt Date: 20131210
  Transmission Date: 20140711
  Serious: Yes (Life-Threatening, Hospitalization, Other)
  Sender: FDA-Public Use
  Company Number: NL-ELI_LILLY_AND_COMPANY-NL201309004150

PATIENT
  Age: 50 Year
  Sex: Male

DRUGS (14)
  1. CYMBALTA [Suspect]
     Indication: AXONAL NEUROPATHY
     Dosage: UNK, UNKNOWN
     Route: 048
     Dates: start: 20130903, end: 20130905
  2. ATORVASTATIN [Concomitant]
     Dosage: UNK, BID
     Route: 065
  3. PIPAMPERON [Concomitant]
     Dosage: 80 MG, QD
     Route: 065
  4. METOCLOPRAMIDE [Concomitant]
     Dosage: 100 MG, BID
     Route: 065
  5. PANTOPRAZOL [Concomitant]
     Dosage: 40 MG, UNKNOWN
     Route: 065
  6. PROMETHAZINE [Concomitant]
     Dosage: 25 MG, UNKNOWN
     Route: 065
  7. CLONAZEPAM [Concomitant]
     Dosage: 1.5 MG, QD
     Route: 065
  8. TEMAZEPAM [Concomitant]
     Dosage: 20 MG, QD
     Route: 065
  9. DYDROGESTERONE [Concomitant]
     Dosage: 10 MG, BID
     Route: 065
  10. OXYNORM [Concomitant]
     Dosage: 5 MG, TID
     Route: 065
  11. HUMALOG [Concomitant]
     Dosage: UNK, UNKNOWN
     Route: 065
  12. TRANYLCYPROMINE [Concomitant]
     Dosage: 5 MG, BID
     Route: 065
  13. OXAZEPAM [Concomitant]
     Dosage: 50 MG, PRN
     Route: 065
  14. DEPAKINE CHRONO [Concomitant]
     Dosage: UNK, BID
     Route: 065

REACTIONS (12)
  - Multi-organ disorder [Recovered/Resolved]
  - Loss of consciousness [Recovered/Resolved]
  - Respiration abnormal [Recovered/Resolved]
  - Akathisia [Recovered/Resolved]
  - Syncope [Recovered/Resolved]
  - Convulsion [Recovered/Resolved]
  - Myoclonus [Recovered/Resolved]
  - Dizziness [Recovered/Resolved]
  - Altered state of consciousness [Unknown]
  - Off label use [Unknown]
  - Restlessness [Unknown]
  - Muscle spasms [Unknown]
